FAERS Safety Report 7772701-9 (Version None)
Quarter: 2011Q3

REPORT INFORMATION
  Report Type: 
  Country: None (occurrence: None)
  Receive Date: 20110922
  Receipt Date: 20110615
  Transmission Date: 20111222
  Serious: No
  Sender: FDA-Public Use
  Company Number: US-ASTRAZENECA-2009UW03130

PATIENT
  Age: 16330 Day
  Sex: Male
  Weight: 119.7 kg

DRUGS (10)
  1. RISPERDAL [Concomitant]
     Indication: SCHIZOAFFECTIVE DISORDER
     Route: 048
     Dates: start: 20071213
  2. TRAZODONE HYDROCHLORIDE [Concomitant]
  3. LOVASTATIN [Concomitant]
     Indication: HYPERLIPIDAEMIA
     Dates: start: 20080701
  4. SEROQUEL [Suspect]
     Indication: SCHIZOAFFECTIVE DISORDER
     Dosage: 50 MG TAB TAKE THREE TABLETS BY MOUTH AT BED TIME
     Route: 048
     Dates: start: 20071213
  5. SEROQUEL [Suspect]
     Indication: BIPOLAR DISORDER
     Dosage: 50 MG TAB TAKE THREE TABLETS BY MOUTH AT BED TIME
     Route: 048
     Dates: start: 20071213
  6. CYCLOBENZAPRINE HCL [Concomitant]
     Indication: MUSCLE SPASMS
     Route: 048
     Dates: start: 20071213
  7. NAVANE [Concomitant]
  8. DIVALPROEX SODIUM [Concomitant]
     Indication: AFFECTIVE DISORDER
     Dosage: 500 MG 24 HR ER FOUR TABLETS AT BED TIME
     Route: 048
     Dates: start: 20071213
  9. SEROQUEL [Suspect]
     Route: 048
     Dates: start: 20070101, end: 20080101
  10. SEROQUEL [Suspect]
     Route: 048
     Dates: start: 20070101, end: 20080101

REACTIONS (2)
  - OBESITY [None]
  - TYPE 2 DIABETES MELLITUS [None]
